APPROVED DRUG PRODUCT: METHYLPHENIDATE HYDROCHLORIDE
Active Ingredient: METHYLPHENIDATE HYDROCHLORIDE
Strength: 50MG
Dosage Form/Route: CAPSULE, EXTENDED RELEASE;ORAL
Application: A078873 | Product #002
Applicant: TEVA PHARMACEUTICALS USA
Approved: Jul 19, 2012 | RLD: No | RS: No | Type: DISCN